FAERS Safety Report 7642593-7 (Version None)
Quarter: 2011Q3

REPORT INFORMATION
  Report Type: 
  Country: None (occurrence: None)
  Receive Date: 20110728
  Receipt Date: 20110725
  Transmission Date: 20111222
  Serious: Yes (Other)
  Sender: FDA-Public Use
  Company Number: JP-PFIZER INC-2011152263

PATIENT
  Age: 77 Year
  Sex: Male

DRUGS (6)
  1. LOSARTAN POTASSIUM [Concomitant]
  2. BUFFERIN [Concomitant]
     Dosage: UNK
  3. BASEN [Concomitant]
  4. LIPITOR [Suspect]
     Indication: DYSLIPIDAEMIA
     Dosage: UNK
     Dates: start: 20100101, end: 20100401
  5. NORVASC [Suspect]
     Indication: HYPERTENSION
     Dosage: UNK
     Dates: start: 20060101
  6. LANSOPRAZOLE [Concomitant]
     Dosage: UNK

REACTIONS (2)
  - PAIN IN EXTREMITY [None]
  - BLOOD CREATINE PHOSPHOKINASE INCREASED [None]
